FAERS Safety Report 9735772 (Version 1)
Quarter: 2013Q4

REPORT INFORMATION
  Report Type: Spontaneous
  Country: ES (occurrence: ES)
  Receive Date: 20131206
  Receipt Date: 20131206
  Transmission Date: 20140711
  Serious: Yes (Hospitalization)
  Sender: FDA-Public Use
  Company Number: PHHY2013ES138841

PATIENT
  Age: 75 Year
  Sex: Male

DRUGS (1)
  1. METFORMIN [Suspect]
     Indication: TYPE 2 DIABETES MELLITUS
     Dosage: 850 MG, PER DAY

REACTIONS (16)
  - Blood bicarbonate decreased [Unknown]
  - Blood pH decreased [Unknown]
  - Abdominal pain [Unknown]
  - Vomiting [Unknown]
  - Discomfort [Unknown]
  - Renal failure [Unknown]
  - Blood creatinine increased [Unknown]
  - Blood urea increased [Unknown]
  - Anuria [Unknown]
  - Haemodynamic instability [Unknown]
  - Blood pressure immeasurable [Unknown]
  - Pyrexia [Unknown]
  - Respiratory failure [Unknown]
  - Lactic acidosis [Unknown]
  - Metabolic acidosis [Unknown]
  - Blood lactic acid increased [Unknown]
